FAERS Safety Report 19704357 (Version 1)
Quarter: 2021Q3

REPORT INFORMATION
  Report Type: Spontaneous
  Country: US (occurrence: US)
  Receive Date: 20210816
  Receipt Date: 20210816
  Transmission Date: 20211014
  Serious: No
  Sender: FDA-Public Use
  Company Number: US-TARO-2020TAR01254

PATIENT

DRUGS (1)
  1. TERBINAFINE CREAM 1% [Suspect]
     Active Substance: TERBINAFINE
     Indication: ONYCHOMYCOSIS
     Dosage: SINGLE, ENOUGH TO COVER TWO TOENAILS
     Route: 061
     Dates: start: 20200715

REACTIONS (2)
  - Application site burn [Recovered/Resolved]
  - Off label use [Unknown]
